FAERS Safety Report 9050331 (Version 1)
Quarter: 2013Q1

REPORT INFORMATION
  Report Type: Spontaneous
  Country: GB (occurrence: GB)
  Receive Date: 20130205
  Receipt Date: 20130205
  Transmission Date: 20140127
  Serious: Yes (Other)
  Sender: FDA-Public Use
  Company Number: PHHY2009GB10803

PATIENT
  Age: 68 None
  Sex: Male

DRUGS (3)
  1. CLOZARIL [Suspect]
     Indication: SCHIZOPHRENIA
     Dosage: 100 MG, DAILY
     Route: 048
     Dates: start: 20090316
  2. CLOZARIL [Suspect]
     Indication: CHRONIC LYMPHOCYTIC LEUKAEMIA
  3. MADOPAR [Concomitant]
     Indication: PARKINSON^S DISEASE
     Dosage: 1000 MG, DAILY
     Route: 065

REACTIONS (6)
  - Chronic lymphocytic leukaemia [Unknown]
  - White blood cell count increased [Not Recovered/Not Resolved]
  - Lymphocyte count increased [Not Recovered/Not Resolved]
  - Monocyte count increased [Not Recovered/Not Resolved]
  - Eosinophil count increased [Recovered/Resolved]
  - Haemoglobin decreased [Unknown]
